FAERS Safety Report 19682064 (Version 1)
Quarter: 2021Q3

REPORT INFORMATION
  Report Type: Spontaneous
  Country: AU (occurrence: AU)
  Receive Date: 20210810
  Receipt Date: 20210810
  Transmission Date: 20211014
  Serious: Yes (Other)
  Sender: FDA-Public Use
  Company Number: AU-TERSERA THERAPEUTICS LLC-2021TRS003767

PATIENT

DRUGS (1)
  1. ZOLADEX [Suspect]
     Active Substance: GOSERELIN ACETATE
     Indication: PROSTATE CANCER
     Dosage: 10.8 GRAM, EVERY THREE MONTHS
     Route: 058
     Dates: end: 20210505

REACTIONS (2)
  - Depressed level of consciousness [Unknown]
  - Multiple system atrophy [Unknown]
